FAERS Safety Report 14427475 (Version 2)
Quarter: 2019Q1

REPORT INFORMATION
  Report Type: Spontaneous
  Country: US (occurrence: US)
  Receive Date: 20180123
  Receipt Date: 20190303
  Transmission Date: 20190417
  Serious: No
  Sender: FDA-Public Use
  Company Number: US-IMPAX LABORATORIES, INC-2017-IPXL-03736

PATIENT
  Age: 66 Year
  Sex: Female
  Weight: 65 kg

DRUGS (13)
  1. RYTARY [Suspect]
     Active Substance: CARBIDOPA\LEVODOPA
     Dosage: 36.25/145 MG, FOUR CAPSULES DAILY
     Route: 048
  2. METFORMIN [Concomitant]
     Active Substance: METFORMIN HYDROCHLORIDE
     Indication: DIABETES MELLITUS
     Dosage: UNK
     Route: 065
  3. RYTARY [Suspect]
     Active Substance: CARBIDOPA\LEVODOPA
     Dosage: 23.75/95 MG, THREE CAPSULE EVERY FOUR HOURS
     Route: 048
     Dates: start: 20171214
  4. OLMESARTAN [Concomitant]
     Active Substance: OLMESARTAN
     Indication: HYPERTENSION
     Dosage: UNK
     Route: 065
  5. FENOFIBRATE. [Concomitant]
     Active Substance: FENOFIBRATE
     Indication: BLOOD CHOLESTEROL INCREASED
     Dosage: UNK
     Route: 065
  6. RYTARY [Suspect]
     Active Substance: CARBIDOPA\LEVODOPA
     Dosage: 48.75/195 MG, EVERY 3 HOURS BETWEEN 7:00 AM AND 10:00 PM
     Route: 048
     Dates: start: 2018
  7. SERTRALINE [Concomitant]
     Active Substance: SERTRALINE HYDROCHLORIDE
     Indication: ANXIETY
     Dosage: UNK
     Route: 065
  8. SIMVASTATIN. [Concomitant]
     Active Substance: SIMVASTATIN
     Indication: BLOOD CHOLESTEROL INCREASED
     Dosage: UNK
     Route: 065
  9. RYTARY [Suspect]
     Active Substance: CARBIDOPA\LEVODOPA
     Indication: PARKINSON^S DISEASE
     Dosage: 23.75/95 MG, ONE CAPSULE EVERY FOUR HOURS
     Route: 048
     Dates: start: 201712, end: 201712
  10. NEUPRO [Concomitant]
     Active Substance: ROTIGOTINE
     Indication: PARKINSON^S DISEASE
     Dosage: UNK
     Route: 065
  11. RYTARY [Suspect]
     Active Substance: CARBIDOPA\LEVODOPA
     Dosage: 23.75/95 MG, TWO CAPSULE ALTERNATING WITH 1 CAPSULE EVERY FOUR HOURS
     Route: 048
     Dates: start: 201712, end: 20171214
  12. RYTARY [Suspect]
     Active Substance: CARBIDOPA\LEVODOPA
     Dosage: 36.24/145 MG, TWO CAPSULES AND 48.75/195 MG TWO CAPSULES ALTERANTING DAILY
     Route: 048
     Dates: start: 201802, end: 201802
  13. CARBIDOPA/LEVODOPA [Concomitant]
     Active Substance: CARBIDOPA\LEVODOPA
     Indication: PARKINSON^S DISEASE
     Dosage: 25/100 MG
     Route: 065
     Dates: start: 201712

REACTIONS (5)
  - Therapeutic response shortened [Unknown]
  - Drug ineffective [Unknown]
  - Memory impairment [Not Recovered/Not Resolved]
  - Drug effect delayed [Unknown]
  - Intentional underdose [Unknown]

NARRATIVE: CASE EVENT DATE: 201712
